FAERS Safety Report 4801347-7 (Version None)
Quarter: 2005Q4

REPORT INFORMATION
  Report Type: 
  Country: None (occurrence: None)
  Receive Date: 20051012
  Receipt Date: 20050927
  Transmission Date: 20060501
  Serious: Yes (Death)
  Sender: FDA-Public Use
  Company Number: 2005JP001903

PATIENT
  Age: 6 Year
  Sex: Male
  Weight: 28 kg

DRUGS (2)
  1. PROGRAF [Suspect]
     Indication: BONE MARROW TRANSPLANT
     Dates: start: 20040101, end: 20040101
  2. METHOTREXATE [Concomitant]

REACTIONS (9)
  - BLOOD CULTURE POSITIVE [None]
  - DIARRHOEA [None]
  - GENERAL PHYSICAL CONDITION ABNORMAL [None]
  - GRAFT VERSUS HOST DISEASE [None]
  - NEUTROPHIL COUNT DECREASED [None]
  - PYREXIA [None]
  - RASH [None]
  - WHITE BLOOD CELL COUNT DECREASED [None]
  - WOUND INFECTION STAPHYLOCOCCAL [None]
